FAERS Safety Report 20551203 (Version 1)
Quarter: 2022Q1

REPORT INFORMATION
  Report Type: Report from Study
  Country: US (occurrence: US)
  Receive Date: 20220304
  Receipt Date: 20220304
  Transmission Date: 20220423
  Serious: No
  Sender: FDA-Public Use
  Company Number: US-Ipsen Biopharmaceuticals, Inc.-2022-05341

PATIENT
  Age: 61 Year
  Sex: Male

DRUGS (2)
  1. SOMATULINE DEPOT [Suspect]
     Active Substance: LANREOTIDE ACETATE
     Indication: Neuroendocrine tumour
     Dosage: 120MG/0.5ML
     Route: 058
     Dates: start: 202102
  2. METFORMIN [Suspect]
     Active Substance: METFORMIN HYDROCHLORIDE
     Indication: Blood glucose
     Dosage: DOSE NOT REPORTED, HALF DOSE FOR A COUPLE OF WEEKS AND THEN INCREASED.
     Route: 065
     Dates: start: 2022

REACTIONS (4)
  - Blood glucose abnormal [Recovering/Resolving]
  - Diarrhoea [Recovered/Resolved]
  - Abdominal discomfort [Recovering/Resolving]
  - Fatigue [Recovering/Resolving]

NARRATIVE: CASE EVENT DATE: 20220101
